FAERS Safety Report 5089084-8 (Version None)
Quarter: 2006Q3

REPORT INFORMATION
  Report Type: 
  Country: None (occurrence: None)
  Receive Date: 20060825
  Receipt Date: 20060612
  Transmission Date: 20061208
  Serious: Yes (Hospitalization)
  Sender: FDA-Public Use
  Company Number: JP-BAYER-200610780BYL

PATIENT
  Age: 72 Year
  Sex: Male
  Weight: 76 kg

DRUGS (17)
  1. GLUCOBAY [Suspect]
     Indication: DIABETES MELLITUS
     Route: 048
     Dates: start: 20040608, end: 20051025
  2. ZESTRIL [Concomitant]
     Dosage: TOTAL DAILY DOSE: 10 MG  UNIT DOSE: 10 MG
     Route: 048
     Dates: start: 20020508
  3. NORVASC [Concomitant]
     Dosage: TOTAL DAILY DOSE: 5 MG  UNIT DOSE: 5 MG
     Route: 048
     Dates: start: 20020508
  4. ARTIST [Concomitant]
     Dosage: TOTAL DAILY DOSE: 10 MG  UNIT DOSE: 10 MG
     Route: 048
     Dates: start: 20020508
  5. LANIRAPID [Concomitant]
     Dosage: TOTAL DAILY DOSE: 0.1 MG  UNIT DOSE: 0.1 MG
     Route: 048
     Dates: start: 20020508
  6. MUCODYNE [Concomitant]
     Dosage: TOTAL DAILY DOSE: 1500 MG  UNIT DOSE: 250 MG
     Route: 048
     Dates: start: 20020508
  7. MUCOSOLVAN [Concomitant]
     Dosage: TOTAL DAILY DOSE: 45 MG  UNIT DOSE: 15 MG
     Route: 048
     Dates: start: 20020508
  8. CLARITH [Concomitant]
     Dosage: TOTAL DAILY DOSE: 200 MG  UNIT DOSE: 200 MG
     Route: 048
     Dates: start: 20020508
  9. GASTER D [Concomitant]
     Dosage: TOTAL DAILY DOSE: 20 MG  UNIT DOSE: 20 MG
     Route: 048
     Dates: start: 20020508
  10. MARZULENE-S [Concomitant]
     Dosage: TOTAL DAILY DOSE: 1.5 G  UNIT DOSE: 0.5 G
     Route: 048
     Dates: start: 20020513
  11. CEROCRAL [Concomitant]
     Dosage: TOTAL DAILY DOSE: 30 MG  UNIT DOSE: 10 MG
     Route: 048
     Dates: start: 20020513
  12. SM [Concomitant]
     Dosage: TOTAL DAILY DOSE: 3.9 G  UNIT DOSE: 1.3 G
     Route: 048
     Dates: start: 20020513
  13. PHENOBAL [Concomitant]
     Dosage: TOTAL DAILY DOSE: 80 MG
     Route: 048
     Dates: start: 20020513
  14. PANALDINE [Concomitant]
     Dosage: TOTAL DAILY DOSE: 200 MG  UNIT DOSE: 100 MG
     Route: 048
     Dates: start: 20020513
  15. WARFARIN SODIUM [Concomitant]
     Dosage: TOTAL DAILY DOSE: 3 MG  UNIT DOSE: 1 MG
     Route: 048
     Dates: start: 20031201
  16. TSUMURA HACHIMIJIO-GAN EKISU GRANULE [Concomitant]
     Dosage: TOTAL DAILY DOSE: 5.0 G  UNIT DOSE: 2.5 G
     Route: 048
     Dates: start: 20041208, end: 20060110
  17. POLLAKISU [Concomitant]
     Dosage: TOTAL DAILY DOSE: 4 MG  UNIT DOSE: 2 MG
     Route: 048
     Dates: start: 20050622, end: 20060110

REACTIONS (3)
  - DRUG INEFFECTIVE [None]
  - FLATULENCE [None]
  - PNEUMATOSIS INTESTINALIS [None]
